FAERS Safety Report 19257834 (Version 1)
Quarter: 2021Q2

REPORT INFORMATION
  Report Type: Report from Study
  Country: US (occurrence: US)
  Receive Date: 20210514
  Receipt Date: 20210514
  Transmission Date: 20210717
  Serious: Yes (Life-Threatening)
  Sender: FDA-Public Use
  Company Number: US-ENDO PHARMACEUTICALS INC-2021-002866

PATIENT
  Age: 21 Year
  Sex: Female
  Weight: 119 kg

DRUGS (3)
  1. PF?06928316;PLACEBO (CODE NOT BROKEN) [Concomitant]
     Indication: IMMUNISATION
     Dosage: UNK UNKNOWN, SINGLE
     Route: 030
     Dates: start: 20210217, end: 20210217
  2. PITOCIN [Suspect]
     Active Substance: OXYTOCIN
     Indication: LABOUR INDUCTION
     Dosage: 18 UNITS/HOUR
     Route: 042
     Dates: start: 20210402, end: 20210402
  3. CYTOTEC [Concomitant]
     Active Substance: MISOPROSTOL
     Indication: LABOUR INDUCTION
     Dosage: UNK UNKNOWN, UNKNOWN
     Route: 065
     Dates: start: 20210402, end: 20210402

REACTIONS (3)
  - Maternal exposure during pregnancy [Recovered/Resolved]
  - Accidental overdose [Recovered/Resolved]
  - Premature separation of placenta [Recovered/Resolved]

NARRATIVE: CASE EVENT DATE: 20210402
